FAERS Safety Report 9405367 (Version 1)
Quarter: 2013Q3

REPORT INFORMATION
  Report Type: Spontaneous
  Country: LT (occurrence: None)
  Receive Date: 20130715
  Receipt Date: 20130715
  Transmission Date: 20140515
  Serious: Yes (Life-Threatening, Hospitalization)
  Sender: FDA-Public Use
  Company Number: 2013P1011995

PATIENT
  Age: 24 Year
  Sex: Female
  Weight: 54.89 kg

DRUGS (5)
  1. ZINACEF [Suspect]
     Indication: ANTIBIOTIC PROPHYLAXIS
     Route: 042
     Dates: start: 20130612
  2. ROCURONIUM [Concomitant]
  3. PROPOFOL [Concomitant]
  4. SUXAMETHONIUM [Concomitant]
  5. FENTANYL [Concomitant]

REACTIONS (4)
  - Laryngeal oedema [None]
  - Hepatic failure [None]
  - Laryngospasm [None]
  - Bronchospasm [None]
